FAERS Safety Report 8329839-7 (Version None)
Quarter: 2012Q2

REPORT INFORMATION
  Report Type: 
  Country: None (occurrence: None)
  Receive Date: 20120502
  Receipt Date: 20120424
  Transmission Date: 20120825
  Serious: Yes (Other)
  Sender: FDA-Public Use
  Company Number: US-JNJFOC-20120411789

PATIENT
  Sex: Female
  Weight: 92.99 kg

DRUGS (1)
  1. SIMPONI [Suspect]
     Indication: PSORIATIC ARTHROPATHY
     Route: 058
     Dates: start: 20100101

REACTIONS (4)
  - THYROID CANCER [None]
  - MAMMOPLASTY [None]
  - DEVICE MISUSE [None]
  - DRUG DOSE OMISSION [None]
